FAERS Safety Report 5179607-2 (Version None)
Quarter: 2006Q4

REPORT INFORMATION
  Report Type: 
  Country: None (occurrence: None)
  Receive Date: 20061219
  Receipt Date: 20061204
  Transmission Date: 20070319
  Serious: Yes (Hospitalization)
  Sender: FDA-Public Use
  Company Number: US-ABBOTT-06P-163-0353327-00

PATIENT
  Sex: Female

DRUGS (1)
  1. BIAXIN XL [Suspect]
     Indication: DRUG USE FOR UNKNOWN INDICATION
     Route: 048
     Dates: start: 20061101

REACTIONS (4)
  - FLATULENCE [None]
  - INSOMNIA [None]
  - MUSCLE SPASMS [None]
  - SMALL INTESTINAL OBSTRUCTION [None]
